FAERS Safety Report 10958753 (Version 3)
Quarter: 2015Q2

REPORT INFORMATION
  Report Type: Report from Study
  Country: UA (occurrence: UA)
  Receive Date: 20150326
  Receipt Date: 20150427
  Transmission Date: 20150821
  Serious: Yes (Death)
  Sender: FDA-Public Use
  Company Number: UA-AMGEN-UKRCT2015028544

PATIENT
  Age: 61 Year
  Sex: Male
  Weight: 87 kg

DRUGS (8)
  1. DEXAMETHASONE. [Concomitant]
     Active Substance: DEXAMETHASONE
     Indication: PREMEDICATION
     Dosage: 20 MG, UNK
     Dates: start: 20150119, end: 20150302
  2. FAMOTIDINE. [Concomitant]
     Active Substance: FAMOTIDINE
     Indication: PREMEDICATION
     Dosage: 40 MG, UNK
     Dates: start: 20150119, end: 20150302
  3. GLIBENCLAMIDE [Concomitant]
     Active Substance: GLYBURIDE
     Indication: DIABETES MELLITUS
     Dosage: 5 MG, UNK
     Dates: start: 20150112, end: 20150302
  4. DIPHENHYDRAMINE [Concomitant]
     Active Substance: DIPHENHYDRAMINE
     Indication: PREMEDICATION
     Dosage: 50 MG, UNK
     Dates: start: 20150119, end: 20150302
  5. PACLITAXEL. [Concomitant]
     Active Substance: PACLITAXEL
     Dosage: 367.5-370 MG, UNK
     Dates: start: 20150119, end: 20150302
  6. DARBEPOETIN ALFA [Suspect]
     Active Substance: DARBEPOETIN ALFA
     Indication: ANAEMIA OF MALIGNANT DISEASE
     Dosage: UNK
     Route: 065
     Dates: start: 20150119, end: 20150302
  7. CARBOPLATIN. [Concomitant]
     Active Substance: CARBOPLATIN
     Dosage: 876-1308 MG, UNK
     Dates: start: 20150119, end: 20150302
  8. ONDANSETRON [Concomitant]
     Active Substance: ONDANSETRON
     Indication: PREMEDICATION
     Dosage: 8 MG, UNK
     Dates: start: 20150119, end: 20150302

REACTIONS (1)
  - Pulmonary embolism [Fatal]

NARRATIVE: CASE EVENT DATE: 20150316
